FAERS Safety Report 4777255-7 (Version None)
Quarter: 2005Q3

REPORT INFORMATION
  Report Type: 
  Country: None (occurrence: None)
  Receive Date: 20050923
  Receipt Date: 20050920
  Transmission Date: 20060218
  Serious: Yes (Death)
  Sender: FDA-Public Use
  Company Number: 2005AC01381

PATIENT
  Age: 42 Year
  Sex: Male

DRUGS (2)
  1. PROPOFOL [Suspect]
     Indication: DENTAL OPERATION
     Route: 051
  2. NALBUPHINE [Suspect]
     Indication: DENTAL OPERATION
     Route: 051

REACTIONS (2)
  - GENERAL PHYSICAL HEALTH DETERIORATION [None]
  - RESPIRATORY FAILURE [None]
